FAERS Safety Report 5220127-4 (Version None)
Quarter: 2006Q4

REPORT INFORMATION
  Report Type: 
  Country: None (occurrence: None)
  Receive Date: 20061121
  Receipt Date: 20060831
  Transmission Date: 20070319
  Serious: No
  Sender: FDA-Public Use
  Company Number: TPA2006A01363

PATIENT
  Age: 87 Year
  Sex: Female
  Weight: 48.9885 kg

DRUGS (4)
  1. ROZEREM [Suspect]
     Indication: INSOMNIA
     Dosage: 8 MG, QHS, PER ORAL
     Route: 048
     Dates: start: 20060811
  2. PLAVIX [Concomitant]
  3. AVAPRO [Concomitant]
  4. RESTORIL [Concomitant]

REACTIONS (1)
  - DRUG INEFFECTIVE [None]
